FAERS Safety Report 5129845-X (Version None)
Quarter: 2006Q4

REPORT INFORMATION
  Report Type: 
  Country: None (occurrence: None)
  Receive Date: 20061012
  Receipt Date: 20060929
  Transmission Date: 20070319
  Serious: Yes (Hospitalization, Other)
  Sender: FDA-Public Use
  Company Number: ST-2006-009259

PATIENT
  Age: 67 Year
  Sex: Female
  Weight: 40 kg

DRUGS (4)
  1. OLMETEC [Suspect]
     Indication: HYPERTENSION
     Dosage: 20 MG QD PO
     Route: 048
     Dates: start: 20060809, end: 20060909
  2. DIART [Suspect]
     Indication: HYPERTENSION
     Dosage: 60 MG QD PO
     Route: 048
     Dates: start: 20060725, end: 20060909
  3. SELBEX [Suspect]
     Indication: HYPERTENSION
     Dosage: 50 MG TID PO
     Route: 048
     Dates: start: 20060822, end: 20060909
  4. .. [Concomitant]

REACTIONS (5)
  - BACTERIAL INFECTION [None]
  - PLATELET COUNT DECREASED [None]
  - STEVENS-JOHNSON SYNDROME [None]
  - VIRAL INFECTION [None]
  - WHITE BLOOD CELL COUNT DECREASED [None]
